FAERS Safety Report 15637706 (Version 1)
Quarter: 2018Q4

REPORT INFORMATION
  Report Type: Spontaneous
  Country: US (occurrence: US)
  Receive Date: 20181120
  Receipt Date: 20181120
  Transmission Date: 20190205
  Serious: No
  Sender: FDA-Public Use
  Company Number: US-JNJFOC-20180615272

PATIENT
  Sex: Female
  Weight: 63 kg

DRUGS (15)
  1. CYANOCOBALAMIN. [Concomitant]
     Active Substance: CYANOCOBALAMIN
  2. VITAMIN D3 [Concomitant]
     Active Substance: CHOLECALCIFEROL
  3. NAMENDA [Concomitant]
     Active Substance: MEMANTINE HYDROCHLORIDE
  4. IMBRUVICA [Suspect]
     Active Substance: IBRUTINIB
     Indication: NON-HODGKIN^S LYMPHOMA
     Route: 048
     Dates: start: 201804
  5. SERTRALINE [Concomitant]
     Active Substance: SERTRALINE HYDROCHLORIDE
  6. FOLIC ACID. [Concomitant]
     Active Substance: FOLIC ACID
  7. GABAPENTIN. [Concomitant]
     Active Substance: GABAPENTIN
  8. MULTIVITAMINS [Concomitant]
     Active Substance: VITAMINS
  9. SALMO SALAR OIL [Concomitant]
     Active Substance: ATLANTIC SALMON OIL
  10. CALCIUM [Concomitant]
     Active Substance: CALCIUM
  11. IMBRUVICA [Suspect]
     Active Substance: IBRUTINIB
     Indication: NON-HODGKIN^S LYMPHOMA
     Route: 048
  12. GLUCOSAMINE [Concomitant]
     Active Substance: GLUCOSAMINE
  13. CELEBREX [Concomitant]
     Active Substance: CELECOXIB
  14. OMEPRAZOLE. [Concomitant]
     Active Substance: OMEPRAZOLE
  15. TOCOPHEROL [Concomitant]
     Active Substance: TOCOPHEROL

REACTIONS (3)
  - Extra dose administered [Unknown]
  - Off label use [Unknown]
  - Product use issue [Unknown]

NARRATIVE: CASE EVENT DATE: 2018
